FAERS Safety Report 10028450 (Version 1)
Quarter: 2014Q1

REPORT INFORMATION
  Report Type: Spontaneous
  Country: US (occurrence: None)
  Receive Date: 20140307
  Receipt Date: 20140307
  Transmission Date: 20141002
  Serious: Yes (Other)
  Sender: FDA-Public Use
  Company Number: 2014AP001678

PATIENT
  Sex: 0

DRUGS (3)
  1. CARBAMAZEPINE [Suspect]
     Route: 064
  2. LAMOTRIGINE TABLETS [Suspect]
     Route: 064
  3. CLONAZEPAM TABLETS, USP [Suspect]
     Route: 064

REACTIONS (2)
  - Polydactyly [None]
  - Foetal exposure during pregnancy [None]
